FAERS Safety Report 9033069 (Version 2)
Quarter: 2013Q1

REPORT INFORMATION
  Report Type: Report from Study
  Country: NL (occurrence: NL)
  Receive Date: 20130128
  Receipt Date: 20130201
  Transmission Date: 20140127
  Serious: Yes (Hospitalization)
  Sender: FDA-Public Use
  Company Number: NL-GENZYME-CLOF-1002492

PATIENT
  Age: 66 Year
  Sex: Female
  Weight: 78 kg

DRUGS (12)
  1. EVOLTRA [Suspect]
     Indication: ACUTE LYMPHOCYTIC LEUKAEMIA
     Dosage: 55 MG, UNK
     Route: 042
     Dates: start: 20121215
  2. ADRIAMYCIN [Suspect]
     Indication: ACUTE LYMPHOCYTIC LEUKAEMIA
     Dosage: 36.99-18.5 MG
     Route: 042
     Dates: start: 20121228
  3. METHOTREXATE [Suspect]
     Indication: ACUTE LYMPHOCYTIC LEUKAEMIA
     Dosage: 15 MG, UNK
     Route: 037
     Dates: start: 20121224
  4. METHOTREXATE [Suspect]
     Dosage: 15 MG, UNK
     Route: 037
     Dates: start: 20121231
  5. PREDNISOLONE [Suspect]
     Indication: ACUTE LYMPHOCYTIC LEUKAEMIA
     Dosage: 36.99 MG, BID
     Route: 048
     Dates: start: 20121221
  6. PREDNISOLONE [Suspect]
     Dosage: 25 MG, UNK
     Route: 037
     Dates: start: 20121224
  7. PREDNISOLONE [Suspect]
     Dosage: 25 MG, UNK
     Route: 037
     Dates: start: 20121231
  8. PREDNISOLONE [Suspect]
     Dosage: 20 MG, UNK
     Route: 048
     Dates: start: 20130111
  9. VINCRISTINE [Suspect]
     Indication: ACUTE LYMPHOCYTIC LEUKAEMIA
     Dosage: 1 MG, UNK
     Route: 042
     Dates: start: 20121221
  10. FLUCONAZOLE [Concomitant]
     Indication: ORAL CANDIDIASIS
     Dosage: 150 MG, UNK
     Route: 048
     Dates: start: 20121214
  11. FLUCONAZOLE [Concomitant]
     Dosage: 150 MG, UNK
     Route: 048
     Dates: start: 20130115
  12. NYSTATIN [Concomitant]
     Indication: ORAL CANDIDIASIS
     Dosage: 15 ML, UNK
     Route: 048
     Dates: start: 20130104

REACTIONS (2)
  - Hepatic enzyme increased [Unknown]
  - Systemic candida [Unknown]
